FAERS Safety Report 8821564 (Version 2)
Quarter: 2012Q4

REPORT INFORMATION
  Report Type: 
  Country: US (occurrence: US)
  Receive Date: 20121002
  Receipt Date: 20121019
  Transmission Date: 20130627
  Serious: Yes (Other)
  Sender: FDA-Public Use
  Company Number: CHPA2012US020360

PATIENT
  Age: 82 Year
  Sex: Female

DRUGS (1)
  1. EXCEDRIN EXTRA STRENGTH [Suspect]
     Indication: HEADACHE
     Dosage: 1 caplet, as needed
     Route: 048
     Dates: end: 2012

REACTIONS (3)
  - Brain neoplasm [Not Recovered/Not Resolved]
  - Disease recurrence [Not Recovered/Not Resolved]
  - Underdose [Unknown]
